FAERS Safety Report 23977080 (Version 1)
Quarter: 2024Q2

REPORT INFORMATION
  Report Type: Spontaneous
  Country: PT (occurrence: PT)
  Receive Date: 20240614
  Receipt Date: 20240614
  Transmission Date: 20240715
  Serious: Yes (Other)
  Sender: FDA-Public Use
  Company Number: PT-QUAGEN-2024QUALIT00183

PATIENT
  Age: 45 Year
  Sex: Female

DRUGS (1)
  1. VALPROIC ACID [Suspect]
     Active Substance: VALPROIC ACID
     Indication: Migraine
     Route: 065

REACTIONS (3)
  - Liver injury [Recovering/Resolving]
  - Drug-induced liver injury [Recovering/Resolving]
  - Product use in unapproved indication [Unknown]
